FAERS Safety Report 7580870-9 (Version None)
Quarter: 2011Q2

REPORT INFORMATION
  Report Type: 
  Country: None (occurrence: None)
  Receive Date: 20110629
  Receipt Date: 20110623
  Transmission Date: 20111010
  Serious: Yes (Death)
  Sender: FDA-Public Use
  Company Number: US-PFIZER INC-2011140117

PATIENT
  Sex: Male
  Weight: 136 kg

DRUGS (7)
  1. XANAX [Suspect]
     Indication: ANXIETY
  2. NEURONTIN [Suspect]
     Dosage: 800 MG, 4X/DAY
  3. XANAX [Suspect]
     Indication: PANIC DISORDER
     Dosage: 1 MG, 4X/DAY
     Route: 048
     Dates: start: 20110601
  4. NEURONTIN [Suspect]
     Indication: NEURALGIA
     Dosage: 400 MG, 2X/DAY
     Dates: start: 20101201
  5. ZOLOFT [Suspect]
     Indication: DEPRESSION
     Dosage: 50 MG, DAILY
     Route: 048
     Dates: start: 20101201
  6. DURAGESIC-100 [Concomitant]
     Indication: BACK PAIN
     Dosage: 100 MCG EVERY 2 DAYS
     Route: 062
  7. OXYCODONE [Concomitant]
     Indication: BREAKTHROUGH PAIN
     Dosage: 30 MG, 3X/DAY

REACTIONS (1)
  - DEATH [None]
